FAERS Safety Report 14769561 (Version 4)
Quarter: 2018Q3

REPORT INFORMATION
  Report Type: Spontaneous
  Country: CA (occurrence: CA)
  Receive Date: 20180417
  Receipt Date: 20180817
  Transmission Date: 20181010
  Serious: Yes (Other)
  Sender: FDA-Public Use
  Company Number: CA-CELLTRION INC.-2018CA019022

PATIENT

DRUGS (9)
  1. INFLECTRA [Suspect]
     Active Substance: INFLIXIMAB-DYYB
     Dosage: 350 MG, EVERY 0,2,6 WEEKS, THEN EVERY 6 WEEKS
     Route: 042
     Dates: start: 20180627
  2. INFLECTRA [Suspect]
     Active Substance: INFLIXIMAB-DYYB
     Dosage: 350 MG, EVERY 0,2,6 WEEKS, THEN EVERY 6 WEEKS
     Route: 042
     Dates: start: 20180807
  3. LITHIUM. [Suspect]
     Active Substance: LITHIUM
     Indication: PRODUCT USED FOR UNKNOWN INDICATION
     Dosage: UNK
     Route: 065
  4. VIMOVO [Concomitant]
     Active Substance: ESOMEPRAZOLE MAGNESIUM\NAPROXEN
     Dosage: UNK
  5. INFLECTRA [Suspect]
     Active Substance: INFLIXIMAB-DYYB
     Indication: ANKYLOSING SPONDYLITIS
     Dosage: 350 MG, EVERY 0,2,6 WEEKS, THEN EVERY 6 WEEKS
     Route: 042
     Dates: start: 20180221
  6. INFLECTRA [Suspect]
     Active Substance: INFLIXIMAB-DYYB
     Dosage: 350 MG, EVERY 0,2,6 WEEKS, THEN EVERY 6 WEEKS
     Route: 042
     Dates: start: 20180404
  7. INFLECTRA [Suspect]
     Active Substance: INFLIXIMAB-DYYB
     Dosage: 350 MG, EVERY 0,2,6 WEEKS, THEN EVERY 6 WEEKS
     Route: 042
     Dates: start: 20180517
  8. INFLECTRA [Suspect]
     Active Substance: INFLIXIMAB-DYYB
     Dosage: 350 MG, EVERY 0,2,6 WEEKS, THEN EVERY 6 WEEKS
     Route: 042
     Dates: start: 20180307
  9. INFLECTRA [Suspect]
     Active Substance: INFLIXIMAB-DYYB
     Dosage: 350 MG, EVERY 0,2,6 WEEKS, THEN EVERY 6 WEEKS
     Route: 042
     Dates: start: 20180627

REACTIONS (3)
  - Blindness [Unknown]
  - Blood pressure fluctuation [Unknown]
  - Nasal ulcer [Recovering/Resolving]

NARRATIVE: CASE EVENT DATE: 2018
